FAERS Safety Report 5964450-4 (Version None)
Quarter: 2008Q4

REPORT INFORMATION
  Report Type: 
  Country: None (occurrence: None)
  Receive Date: 20081124
  Receipt Date: 20081124
  Transmission Date: 20090506
  Serious: Yes (Hospitalization)
  Sender: FDA-Public Use
  Company Number: None

PATIENT
  Age: 51 Year
  Sex: Female
  Weight: 70.3075 kg

DRUGS (1)
  1. ACTONEL [Suspect]
     Indication: OSTEOPOROSIS
     Dosage: 1 PILL - 35MG
     Dates: start: 20080101

REACTIONS (7)
  - BONE PAIN [None]
  - CHEST PAIN [None]
  - EATING DISORDER [None]
  - MOVEMENT DISORDER [None]
  - OESOPHAGEAL PAIN [None]
  - OESOPHAGITIS [None]
  - PAIN [None]
